FAERS Safety Report 7726449-7 (Version None)
Quarter: 2011Q3

REPORT INFORMATION
  Report Type: 
  Country: None (occurrence: None)
  Receive Date: 20110902
  Receipt Date: 20110829
  Transmission Date: 20111222
  Serious: Yes (Other)
  Sender: FDA-Public Use
  Company Number: US-GENZYME-FABR-1002126

PATIENT

DRUGS (2)
  1. AGALSIDASE ALFA [Suspect]
     Indication: FABRY'S DISEASE
     Dosage: 0.2 MG/KG, Q2W
     Route: 042
  2. FABRAZYME [Suspect]
     Indication: FABRY'S DISEASE
     Route: 042

REACTIONS (1)
  - TRANSIENT ISCHAEMIC ATTACK [None]
